FAERS Safety Report 16259248 (Version 1)
Quarter: 2019Q2

REPORT INFORMATION
  Report Type: Report from Study
  Country: IT (occurrence: IT)
  Receive Date: 20190501
  Receipt Date: 20190501
  Transmission Date: 20190711
  Serious: Yes (Other)
  Sender: FDA-Public Use
  Company Number: IT-TEVA-2019-IT-1042665

PATIENT
  Age: 57 Year
  Sex: Male

DRUGS (5)
  1. INDOXEN 25 MG CAPSULE RIGIDE [Suspect]
     Active Substance: INDOMETHACIN
     Indication: HEADACHE
     Route: 048
     Dates: start: 20190214, end: 20190215
  2. ATENOLOL. [Concomitant]
     Active Substance: ATENOLOL
     Indication: HYPERTENSION
  3. CARDIOASPIRIN 100 MG COMPRESSE GASTRORESISTENTI [Suspect]
     Active Substance: ASPIRIN
     Indication: HYPERTENSION
     Dosage: 1 DOSAGE FORMS DAILY;
     Route: 048
  4. PANTORC 20 MG COMPRESSE GASTRORESISTENTI [Concomitant]
     Active Substance: PANTOPRAZOLE SODIUM
  5. RAMIPRIL. [Suspect]
     Active Substance: RAMIPRIL
     Indication: HYPERTENSION
     Route: 065

REACTIONS (2)
  - Blood pressure increased [Recovering/Resolving]
  - Chest pain [Recovering/Resolving]

NARRATIVE: CASE EVENT DATE: 20190214
